FAERS Safety Report 5123719-6 (Version None)
Quarter: 2006Q3

REPORT INFORMATION
  Report Type: 
  Country: None (occurrence: None)
  Receive Date: 20060811
  Receipt Date: 20060512
  Transmission Date: 20061208
  Serious: No
  Sender: FDA-Public Use
  Company Number: S06-USA-01882-01

PATIENT
  Age: 84 Year
  Sex: Female

DRUGS (2)
  1. NAMENDA [Suspect]
  2. ARICEPT [Concomitant]

REACTIONS (1)
  - PARANOIA [None]
